FAERS Safety Report 4422168-3 (Version None)
Quarter: 2004Q3

REPORT INFORMATION
  Report Type: 
  Country: None (occurrence: None)
  Receive Date: 20040712
  Receipt Date: 20031014
  Transmission Date: 20050211
  Serious: Yes (Hospitalization)
  Sender: FDA-Public Use
  Company Number: TAP2003Q02412

PATIENT
  Age: 67 Year
  Sex: Female

DRUGS (3)
  1. PREVACID [Suspect]
     Indication: DYSPEPSIA
     Dosage: 30 MG, ONCE, ORAL
     Route: 048
     Dates: start: 20030601, end: 20030601
  2. VITAMINS (VITAMINS) [Concomitant]
  3. CALCIUM (CALCIUM /N/A) [Concomitant]

REACTIONS (8)
  - ANAPHYLACTIC SHOCK [None]
  - AURICULAR SWELLING [None]
  - DYSPNOEA [None]
  - EYE REDNESS [None]
  - GENERALISED ERYTHEMA [None]
  - HOT FLUSH [None]
  - LOSS OF CONSCIOUSNESS [None]
  - PRURITUS GENERALISED [None]
